FAERS Safety Report 5179304-3 (Version None)
Quarter: 2006Q4

REPORT INFORMATION
  Report Type: 
  Country: None (occurrence: None)
  Receive Date: 20061219
  Receipt Date: 20061109
  Transmission Date: 20070319
  Serious: Yes (Death, Life-Threatening, Hospitalization, Congenital Anomaly, Other)
  Sender: FDA-Public Use
  Company Number: US-GLAXOSMITHKLINE-A0627119A

PATIENT
  Sex: Male

DRUGS (2)
  1. LAMICTAL [Suspect]
     Dosage: 50MG PER DAY
     Dates: start: 20051005, end: 20060302
  2. NO CONCURRENT MEDICATIONS [Concomitant]

REACTIONS (12)
  - ATRIAL SEPTAL DEFECT [None]
  - BAROTRAUMA [None]
  - CONGENITAL DIAPHRAGMATIC HERNIA [None]
  - DRUG EXPOSURE DURING PREGNANCY [None]
  - HEART DISEASE CONGENITAL [None]
  - HEPATOMEGALY [None]
  - HUMERUS FRACTURE [None]
  - PALATAL DISORDER [None]
  - PATENT DUCTUS ARTERIOSUS [None]
  - PULMONARY MALFORMATION [None]
  - SKULL MALFORMATION [None]
  - VENTRICULAR HYPERTROPHY [None]
